FAERS Safety Report 5280723-5 (Version None)
Quarter: 2007Q1

REPORT INFORMATION
  Report Type: 
  Country: None (occurrence: None)
  Receive Date: 20070329
  Receipt Date: 20070318
  Transmission Date: 20070707
  Serious: Yes (Disabling, Other)
  Sender: FDA-Public Use
  Company Number: NL-PFIZER INC-2005016395

PATIENT
  Sex: Male

DRUGS (7)
  1. LIPITOR [Suspect]
     Indication: HYPERCHOLESTEROLAEMIA
     Route: 048
     Dates: start: 20040616, end: 20040101
  2. ANTI-DIABETICS [Concomitant]
  3. LOSEC [Concomitant]
     Route: 048
  4. METFORMIN HCL [Concomitant]
     Route: 048
  5. GLIBENCLAMIDE [Concomitant]
     Route: 048
  6. COZAAR [Concomitant]
     Route: 048
  7. ASCAL [Concomitant]
     Route: 048
     Dates: start: 20040616

REACTIONS (9)
  - AXILLARY PAIN [None]
  - GENITAL DISORDER MALE [None]
  - INSOMNIA [None]
  - INTERVERTEBRAL DISC DEGENERATION [None]
  - MUSCLE SPASMS [None]
  - MUSCULAR WEAKNESS [None]
  - MUSCULOSKELETAL PAIN [None]
  - NEURALGIA [None]
  - PAIN IN EXTREMITY [None]
